FAERS Safety Report 5076306-2 (Version None)
Quarter: 2006Q3

REPORT INFORMATION
  Report Type: 
  Country: None (occurrence: None)
  Receive Date: 20060804
  Receipt Date: 20060727
  Transmission Date: 20061208
  Serious: Yes (Death)
  Sender: FDA-Public Use
  Company Number: 0603088US

PATIENT
  Age: 14 Year
  Sex: Female

DRUGS (1)
  1. BOTOX INJECTION 100(BOTULINUM TOXIN TYPE A) POWDER FOR INJECTION [Suspect]
     Indication: TORTICOLLIS
     Dosage: 40 IU, SINGLE, INTRAMUSCULAR
     Route: 030
     Dates: start: 20060529, end: 20060529

REACTIONS (2)
  - ARRHYTHMIA [None]
  - CARDIO-RESPIRATORY ARREST [None]
